FAERS Safety Report 8116609-8 (Version None)
Quarter: 2012Q1

REPORT INFORMATION
  Report Type: 
  Country: None (occurrence: None)
  Receive Date: 20120206
  Receipt Date: 20120124
  Transmission Date: 20120608
  Serious: Yes (Other)
  Sender: FDA-Public Use
  Company Number: PHHY2011DE96866

PATIENT
  Age: 78 Year
  Sex: Male

DRUGS (3)
  1. DIOVAN [Suspect]
     Indication: HYPERTENSION
     Dosage: 160 MG, UNK
     Route: 048
     Dates: start: 20010101
  2. DIOVAN [Suspect]
     Dosage: 1 DF, QD (IN THE MORNING)
     Route: 048
  3. VALSARTAN [Concomitant]
     Dosage: 160 MG, UNK
     Dates: start: 20110101

REACTIONS (2)
  - ATRIAL FIBRILLATION [None]
  - BLOOD PRESSURE INCREASED [None]
